FAERS Safety Report 4868817-7 (Version None)
Quarter: 2005Q4

REPORT INFORMATION
  Report Type: 
  Country: None (occurrence: None)
  Receive Date: 20051223
  Receipt Date: 20051208
  Transmission Date: 20060501
  Serious: Yes (Hospitalization)
  Sender: FDA-Public Use
  Company Number: 220464

PATIENT
  Age: 42 Year
  Sex: Female
  Weight: 93 kg

DRUGS (16)
  1. AVASTIN [Suspect]
     Indication: COLORECTAL CANCER METASTATIC
     Dosage: 5 MG/KG, Q2W, INTRAVENOUS
     Route: 042
     Dates: start: 20050914, end: 20051206
  2. IRINOTECAN HCL [Suspect]
     Indication: COLORECTAL CANCER METASTATIC
     Dosage: 180 MG/M2, Q2W, INTRAVENOUS
     Route: 042
     Dates: start: 20050914, end: 20051206
  3. FLUOROURACIL [Suspect]
     Indication: COLORECTAL CANCER METASTATIC
     Dosage: 600 MG/M2, Q2W, INTRAVENOUS
     Route: 042
     Dates: start: 20050914, end: 20051206
  4. LEUCOVORIN (LEUCOVORIN) [Suspect]
     Indication: COLORECTAL CANCER METASTATIC
  5. EFFEXOR [Concomitant]
  6. COLACE (DOCUSATE SODIUM) [Concomitant]
  7. HYDRALAZINE HYDROCHLORIDE (HYDRALAZINE HYDROCHLORIDE) [Concomitant]
  8. LOPERAMIDE [Concomitant]
  9. PROCHLORPERAZINE [Concomitant]
  10. DILAUDID [Concomitant]
  11. SYNTHROID [Concomitant]
  12. ZOFRAN [Concomitant]
  13. HYDROMORPHONE HYDROCHLORIDE (HYDROMORPHONE HYDROCHLORIDE) [Concomitant]
  14. MILES MAGIC MOUTHWASH SUSPENSION (UNK INGREDI (MOUTHWASH NOS) [Concomitant]
  15. LORAZEPAM [Concomitant]
  16. MAXERAN (METOCLOPRAMIDE HYDROCHLORIDE) [Concomitant]

REACTIONS (3)
  - ASTHENIA [None]
  - BLOOD POTASSIUM DECREASED [None]
  - SEPSIS [None]
